FAERS Safety Report 12669927 (Version 2)
Quarter: 2016Q3

REPORT INFORMATION
  Report Type: Spontaneous
  Country: US (occurrence: US)
  Receive Date: 20160820
  Receipt Date: 20160903
  Transmission Date: 20161109
  Serious: Yes (Hospitalization, Other)
  Sender: FDA-Public Use
  Company Number: US-AUROBINDO-09-AUR-10228

PATIENT
  Age: 91 Year
  Sex: Male

DRUGS (3)
  1. METOPROLOL. [Concomitant]
     Active Substance: METOPROLOL
     Indication: ATRIAL FIBRILLATION
     Dosage: 25 MG, ONCE A DAY
     Route: 065
  2. LEVOFLOXACIN. [Suspect]
     Active Substance: LEVOFLOXACIN
     Indication: URINARY TRACT INFECTION
     Dosage: UNK UNK,UNK,
     Route: 065
  3. CIPROFLOXACIN TABLETS USP 250 MG [Suspect]
     Active Substance: CIPROFLOXACIN
     Indication: URINARY TRACT INFECTION
     Dosage: UNK UNK,UNK,
     Route: 065

REACTIONS (12)
  - Computerised tomogram abnormal [Recovered/Resolved]
  - Unresponsive to stimuli [Recovered/Resolved]
  - Fall [Recovered/Resolved]
  - Creatinine renal clearance abnormal [Recovered/Resolved]
  - Mucosal dryness [Recovered/Resolved]
  - Delirium [Recovered/Resolved]
  - Dehydration [Recovered/Resolved]
  - Acute kidney injury [Recovered/Resolved]
  - Blood urea increased [Recovered/Resolved]
  - Confusional state [Recovered/Resolved]
  - Hypoglycaemia [Recovered/Resolved]
  - Blood creatinine abnormal [Recovered/Resolved]
